FAERS Safety Report 4279423-X (Version None)
Quarter: 2004Q1

REPORT INFORMATION
  Report Type: 
  Country: None (occurrence: None)
  Receive Date: 20040127
  Receipt Date: 20040116
  Transmission Date: 20041129
  Serious: Yes (Life-Threatening, Hospitalization, Disabling)
  Sender: FDA-Public Use
  Company Number: CH-BRISTOL-MYERS SQUIBB COMPANY-12485322

PATIENT
  Age: 42 Year
  Sex: Male

DRUGS (13)
  1. ENDOXAN [Suspect]
     Indication: T-CELL LYMPHOMA
     Dates: start: 20010501, end: 20010501
  2. IMMUNE GLOBULIN INTRAVENOUS (HUMAN) [Suspect]
     Indication: IDIOPATHIC THROMBOCYTOPENIC PURPURA
     Route: 042
     Dates: start: 20010502, end: 20010502
  3. VINCRISTINE [Suspect]
     Indication: T-CELL LYMPHOMA
     Dates: start: 20010501, end: 20010501
  4. DOXORUBICIN BIGMAR [Suspect]
     Indication: T-CELL LYMPHOMA
     Dates: start: 20010501, end: 20010501
  5. ANTRAMUPS [Concomitant]
     Route: 048
  6. VITAMIN D3 [Concomitant]
     Route: 048
  7. FOLVITE [Concomitant]
     Route: 048
  8. BENZALKONIUM CHLORIDE [Concomitant]
  9. MYCOSTATIN [Concomitant]
     Route: 048
  10. DUPHALAC [Concomitant]
     Route: 048
  11. ZYLORIC [Concomitant]
     Route: 048
  12. SOLU-MEDROL [Concomitant]
     Route: 042
  13. PRIMPERAN TAB [Concomitant]
     Route: 042

REACTIONS (3)
  - CEREBRAL HAEMORRHAGE [None]
  - ISCHAEMIC STROKE [None]
  - SUBCLAVIAN VEIN THROMBOSIS [None]
